FAERS Safety Report 5638812-9 (Version None)
Quarter: 2008Q1

REPORT INFORMATION
  Report Type: 
  Country: None (occurrence: None)
  Receive Date: 20080221
  Receipt Date: 20080221
  Transmission Date: 20080703
  Serious: Yes (Death, Life-Threatening, Hospitalization)
  Sender: FDA-Public Use
  Company Number: None

PATIENT
  Age: 79 Year
  Sex: Female

DRUGS (2)
  1. CELEBREX [Suspect]
     Indication: INFLAMMATION
     Dosage: DAILY
     Dates: start: 20050921, end: 20051009
  2. CELEBREX [Suspect]
     Indication: SWELLING
     Dosage: DAILY
     Dates: start: 20050921, end: 20051009

REACTIONS (3)
  - CARDIAC ARREST [None]
  - COUGH [None]
  - MUCOSAL DISCOLOURATION [None]
